FAERS Safety Report 21048607 (Version 2)
Quarter: 2022Q3

REPORT INFORMATION
  Report Type: Spontaneous
  Country: US (occurrence: US)
  Receive Date: 20220706
  Receipt Date: 20220712
  Transmission Date: 20221026
  Serious: No
  Sender: FDA-Public Use
  Company Number: US-PFIZER INC-202200920392

PATIENT
  Age: 76 Year
  Sex: Male
  Weight: 92.971 kg

DRUGS (1)
  1. PAXLOVID [Suspect]
     Active Substance: NIRMATRELVIR\RITONAVIR
     Indication: COVID-19 treatment
     Dosage: 3 DF, 2X/DAY (3 TABLETS IN THE MORNING AND 3 TABLETS IN THE EVENING)
     Dates: start: 20220626, end: 20220701

REACTIONS (3)
  - Dysgeusia [Unknown]
  - Ageusia [Unknown]
  - Anosmia [Unknown]

NARRATIVE: CASE EVENT DATE: 20220627
